FAERS Safety Report 17180522 (Version 1)
Quarter: 2019Q4

REPORT INFORMATION
  Report Type: Spontaneous
  Country: FR (occurrence: FR)
  Receive Date: 20191219
  Receipt Date: 20191219
  Transmission Date: 20200122
  Serious: Yes (Other)
  Sender: FDA-Public Use
  Company Number: FR-MYLANLABS-2019M1124046

PATIENT
  Age: 20 Year
  Sex: Male

DRUGS (2)
  1. FLUMAZENIL. [Suspect]
     Active Substance: FLUMAZENIL
     Indication: PRODUCT USED FOR UNKNOWN INDICATION
     Dosage: UNK
     Route: 065
  2. CODEINE [Concomitant]
     Active Substance: CODEINE
     Dosage: UNK
     Route: 065

REACTIONS (2)
  - Poisoning [Unknown]
  - Seizure [Unknown]
